FAERS Safety Report 13941416 (Version 3)
Quarter: 2018Q2

REPORT INFORMATION
  Report Type: Spontaneous
  Country: DE (occurrence: DE)
  Receive Date: 20170906
  Receipt Date: 20180410
  Transmission Date: 20180711
  Serious: Yes (Life-Threatening, Other)
  Sender: FDA-Public Use
  Company Number: DE-BAYER-2017-167031

PATIENT
  Age: 80 Year
  Sex: Male
  Weight: 70 kg

DRUGS (4)
  1. GADOPENTETATE DIMEGLUMINE. [Suspect]
     Active Substance: GADOPENTETATE DIMEGLUMINE
     Indication: BRAIN NEOPLASM
  2. DOTAREM [Suspect]
     Active Substance: GADOTERATE MEGLUMINE
     Indication: NUCLEAR MAGNETIC RESONANCE IMAGING
     Dosage: UNK
     Dates: start: 20170411, end: 20170411
  3. MULTIHANCE [Suspect]
     Active Substance: GADOBENATE DIMEGLUMINE
     Indication: NUCLEAR MAGNETIC RESONANCE IMAGING
     Dosage: UNK
     Dates: start: 20170725
  4. GADOPENTETATE DIMEGLUMINE. [Suspect]
     Active Substance: GADOPENTETATE DIMEGLUMINE
     Indication: NUCLEAR MAGNETIC RESONANCE IMAGING
     Dosage: UNK UNK, ONCE
     Dates: start: 20170215, end: 20170215

REACTIONS (16)
  - Nontherapeutic agent blood positive [Not Recovered/Not Resolved]
  - Decreased appetite [Recovering/Resolving]
  - Fall [Unknown]
  - Ammonia increased [Recovering/Resolving]
  - Hepatic encephalopathy [Recovering/Resolving]
  - Fall [Unknown]
  - Contrast media reaction [Recovering/Resolving]
  - Confusional state [Recovering/Resolving]
  - Hypoaesthesia [Recovering/Resolving]
  - Nontherapeutic agent urine positive [Not Recovered/Not Resolved]
  - Hepatitis acute [Recovering/Resolving]
  - Apathy [Recovering/Resolving]
  - Liver function test abnormal [Not Recovered/Not Resolved]
  - Dizziness [Recovering/Resolving]
  - Fatigue [Recovering/Resolving]
  - Paraesthesia [Recovering/Resolving]

NARRATIVE: CASE EVENT DATE: 20170306
